FAERS Safety Report 12723301 (Version 1)
Quarter: 2016Q3

REPORT INFORMATION
  Report Type: Report from Study
  Country: US (occurrence: US)
  Receive Date: 20160908
  Receipt Date: 20160908
  Transmission Date: 20161109
  Serious: Yes (Hospitalization, Other)
  Sender: FDA-Public Use
  Company Number: US-AMGEN-USASL2016119728

PATIENT
  Age: 59 Year
  Sex: Male

DRUGS (1)
  1. KYPROLIS [Suspect]
     Active Substance: CARFILZOMIB
     Indication: PLASMA CELL MYELOMA
     Dosage: UNK
     Route: 065

REACTIONS (6)
  - Abdominal distension [Recovered/Resolved]
  - Protein total decreased [Unknown]
  - Clostridium difficile infection [Recovering/Resolving]
  - Chest discomfort [Unknown]
  - Malnutrition [Unknown]
  - Decubitus ulcer [Unknown]
